FAERS Safety Report 6342808-1 (Version None)
Quarter: 2009Q3

REPORT INFORMATION
  Report Type: 
  Country: None (occurrence: None)
  Receive Date: 20090821
  Receipt Date: 20090609
  Transmission Date: 20100115
  Serious: No
  Sender: FDA-Public Use
  Company Number: 8047646

PATIENT
  Age: 52 Year
  Sex: Female
  Weight: 54.4 kg

DRUGS (1)
  1. CIMZIA [Suspect]
     Indication: CROHN'S DISEASE
     Dosage: 400 MG SC
     Route: 058
     Dates: start: 20090317, end: 20090609

REACTIONS (3)
  - BONE PAIN [None]
  - DIARRHOEA [None]
  - HEPATIC ENZYME INCREASED [None]
